FAERS Safety Report 10862243 (Version 2)
Quarter: 2015Q3

REPORT INFORMATION
  Report Type: Report from Study
  Country: US (occurrence: US)
  Receive Date: 20150224
  Receipt Date: 20150813
  Transmission Date: 20151125
  Serious: Yes (Other)
  Sender: FDA-Public Use
  Company Number: PHEH2014US024192

PATIENT
  Sex: Female
  Weight: 68.3 kg

DRUGS (5)
  1. GILENYA [Suspect]
     Active Substance: FINGOLIMOD HYDROCHLORIDE
     Indication: MULTIPLE SCLEROSIS
     Dosage: 0.5 MG, QD
     Route: 048
     Dates: start: 2010
  2. ZONEGRAN [Concomitant]
     Active Substance: ZONISAMIDE
     Indication: PRODUCT USED FOR UNKNOWN INDICATION
     Route: 065
  3. AUBAGIO [Suspect]
     Active Substance: TERIFLUNOMIDE
     Indication: MULTIPLE SCLEROSIS
     Route: 065
  4. GILENYA [Suspect]
     Active Substance: FINGOLIMOD HYDROCHLORIDE
     Dosage: 0.5 MG, QD
     Route: 048
  5. GILENYA [Suspect]
     Active Substance: FINGOLIMOD HYDROCHLORIDE
     Dosage: 0.5 MG, QD
     Route: 048
     Dates: start: 20150122

REACTIONS (26)
  - White blood cell count decreased [Recovering/Resolving]
  - Diplopia [Unknown]
  - Muscular weakness [Not Recovered/Not Resolved]
  - Abdominal pain upper [Not Recovered/Not Resolved]
  - Headache [Unknown]
  - Hemiparesis [Unknown]
  - Eyelid infection [Recovering/Resolving]
  - Erythema of eyelid [Unknown]
  - Hordeolum [Unknown]
  - Red blood cell count decreased [Not Recovered/Not Resolved]
  - Glaucoma [Unknown]
  - Multiple sclerosis relapse [Unknown]
  - Balance disorder [Not Recovered/Not Resolved]
  - Blood cholesterol abnormal [Not Recovered/Not Resolved]
  - Ketosis [Not Recovered/Not Resolved]
  - Seizure [Not Recovered/Not Resolved]
  - Hypoaesthesia [Recovering/Resolving]
  - Asthenia [Not Recovered/Not Resolved]
  - Eyelid oedema [Unknown]
  - Haemorrhage subcutaneous [Not Recovered/Not Resolved]
  - Central nervous system lesion [Not Recovered/Not Resolved]
  - Blindness transient [Unknown]
  - Haemorrhoids [Not Recovered/Not Resolved]
  - Alopecia [Unknown]
  - Weight decreased [Not Recovered/Not Resolved]
  - Diabetes mellitus [Not Recovered/Not Resolved]

NARRATIVE: CASE EVENT DATE: 2013
